FAERS Safety Report 10045874 (Version 1)
Quarter: 2014Q1

REPORT INFORMATION
  Report Type: Spontaneous
  Country: SE (occurrence: SE)
  Receive Date: 20140329
  Receipt Date: 20140329
  Transmission Date: 20141002
  Serious: Yes (Life-Threatening)
  Sender: FDA-Public Use
  Company Number: 2014SP001618

PATIENT
  Age: 68 Year
  Sex: Male

DRUGS (6)
  1. METHOTREXATE [Suspect]
     Indication: COLITIS ULCERATIVE
     Route: 065
     Dates: start: 20051230, end: 20140221
  2. METHOTREXATE [Suspect]
     Indication: ARTHRITIS ENTEROPATHIC
     Route: 065
     Dates: start: 20051230, end: 20140221
  3. SALAZOPYRIN [Suspect]
     Indication: COLITIS ULCERATIVE
     Route: 065
     Dates: start: 20090303, end: 20140221
  4. SALAZOPYRIN [Suspect]
     Indication: ARTHRITIS ENTEROPATHIC
     Route: 065
     Dates: start: 20090303, end: 20140221
  5. CERTOLIZUMAB PEGOL [Suspect]
     Indication: COLITIS ULCERATIVE
     Route: 065
     Dates: start: 20130227, end: 20140221
  6. CERTOLIZUMAB PEGOL [Suspect]
     Indication: ARTHRITIS ENTEROPATHIC
     Route: 065
     Dates: start: 20130227, end: 20140221

REACTIONS (3)
  - Adenocarcinoma [Not Recovered/Not Resolved]
  - Transaminases increased [Not Recovered/Not Resolved]
  - Abdominal pain [Not Recovered/Not Resolved]
